FAERS Safety Report 8522299-2 (Version None)
Quarter: 2012Q3

REPORT INFORMATION
  Report Type: 
  Country: None (occurrence: None)
  Receive Date: 20120719
  Receipt Date: 20120711
  Transmission Date: 20120928
  Serious: Yes (Death, Other)
  Sender: FDA-Public Use
  Company Number: JP-ACTELION-A-CH2010-41361

PATIENT
  Age: 41 Day
  Sex: Male

DRUGS (3)
  1. SILDENAFIL [Suspect]
     Dosage: 1 MG/KG, QD
     Route: 048
  2. EPOPROSTENOL [Concomitant]
  3. TRACLEER [Suspect]
     Indication: PULMONARY ARTERIAL HYPERTENSION
     Route: 048

REACTIONS (7)
  - TACHYCARDIA [None]
  - BRADYCARDIA [None]
  - CARDIAC FAILURE [None]
  - BLOOD PRESSURE DECREASED [None]
  - MECHANICAL VENTILATION [None]
  - HYPOXIA [None]
  - TRACHEOSTOMY [None]
